FAERS Safety Report 7480408-0 (Version None)
Quarter: 2011Q2

REPORT INFORMATION
  Report Type: 
  Country: None (occurrence: None)
  Receive Date: 20110516
  Receipt Date: 20110512
  Transmission Date: 20111010
  Serious: Yes (Death)
  Sender: FDA-Public Use
  Company Number: PHHY2011US40240

PATIENT
  Sex: Male
  Weight: 81.633 kg

DRUGS (1)
  1. EXJADE [Suspect]
     Indication: NEOPLASM
     Dosage: 3000 MG, QD
     Route: 048
     Dates: start: 20080411

REACTIONS (1)
  - DEATH [None]
